FAERS Safety Report 5388960-6 (Version None)
Quarter: 2007Q3

REPORT INFORMATION
  Report Type: 
  Country: None (occurrence: None)
  Receive Date: 20070717
  Receipt Date: 20070710
  Transmission Date: 20080115
  Serious: Yes (Disabling)
  Sender: FDA-Public Use
  Company Number: PHFR2007GB01532

PATIENT
  Age: 49 Year
  Sex: Female

DRUGS (1)
  1. ESTRADERM [Suspect]
     Indication: MENOPAUSE
     Dosage: 50MG DAILY
     Route: 062

REACTIONS (3)
  - APPLICATION SITE SCAR [None]
  - APPLICATION SITE VESICLES [None]
  - URTICARIA [None]
